FAERS Safety Report 7714027-5 (Version None)
Quarter: 2011Q3

REPORT INFORMATION
  Report Type: 
  Country: None (occurrence: None)
  Receive Date: 20110826
  Receipt Date: 20110813
  Transmission Date: 20111222
  Serious: Yes (Other)
  Sender: FDA-Public Use
  Company Number: US-WATSON-2011-13069

PATIENT
  Age: 3 Year
  Sex: Female
  Weight: 14.9 kg

DRUGS (2)
  1. GELNIQUE [Suspect]
     Indication: HYPERTONIC BLADDER
     Dosage: 1 SACHET @7PM ON THURSDAY + FRIDAY
     Dates: start: 20110811, end: 20110812
  2. SMOOTHLAX [Concomitant]
     Indication: CONSTIPATION
     Dosage: 1 TSP DAILY
     Route: 048
     Dates: start: 20110301

REACTIONS (2)
  - HALLUCINATION, VISUAL [None]
  - NERVOUSNESS [None]
